FAERS Safety Report 6091166-9 (Version None)
Quarter: 2009Q1

REPORT INFORMATION
  Report Type: 
  Country: None (occurrence: None)
  Receive Date: 20090220
  Receipt Date: 20090211
  Transmission Date: 20090719
  Serious: Yes (Other)
  Sender: FDA-Public Use
  Company Number: 177325

PATIENT
  Sex: Male

DRUGS (4)
  1. CARBOPLATIN [Suspect]
     Indication: METASTASES TO LUNG
     Dates: start: 20080301
  2. CARBOPLATIN [Suspect]
     Indication: PLEURAL EFFUSION
     Dates: start: 20080301
  3. GEMCITABINE [Suspect]
     Indication: METASTASES TO LUNG
     Dates: start: 20080301
  4. GEMCITABINE [Suspect]
     Indication: PLEURAL EFFUSION
     Dates: start: 20080301

REACTIONS (2)
  - RECALL PHENOMENON [None]
  - ULCER [None]
